FAERS Safety Report 4972820-6 (Version None)
Quarter: 2006Q2

REPORT INFORMATION
  Report Type: 
  Country: None (occurrence: None)
  Receive Date: 20060414
  Receipt Date: 20060404
  Transmission Date: 20061013
  Serious: Yes (Hospitalization)
  Sender: FDA-Public Use
  Company Number: GB-JNJFOC-20060402473

PATIENT
  Age: 77 Year
  Sex: Female

DRUGS (10)
  1. TRAMADOL HCL [Suspect]
     Indication: DRUG USE FOR UNKNOWN INDICATION
     Route: 048
  2. GABAPENTIN [Concomitant]
     Indication: BACK PAIN
     Route: 048
  3. FERROUS SULFATE TAB [Concomitant]
     Route: 048
  4. PARACETAMOL [Concomitant]
     Route: 048
  5. SIMVASTATIN [Concomitant]
     Route: 048
  6. SENNA [Concomitant]
     Route: 065
  7. ONDANSETRON [Concomitant]
     Route: 065
  8. LEVOTHYROXINE SODIUM [Concomitant]
     Route: 065
  9. ADCAL [Concomitant]
     Route: 065
  10. LANSOPRAZOLE [Concomitant]
     Route: 065

REACTIONS (2)
  - CIRCULATORY COLLAPSE [None]
  - NERVOUS SYSTEM DISORDER [None]
